FAERS Safety Report 23960090 (Version 2)
Quarter: 2024Q2

REPORT INFORMATION
  Report Type: Spontaneous
  Country: ES (occurrence: ES)
  Receive Date: 20240611
  Receipt Date: 20240626
  Transmission Date: 20240716
  Serious: Yes (Other)
  Sender: FDA-Public Use
  Company Number: ES-TEVA-VS-3207440

PATIENT
  Age: 79 Year
  Sex: Female

DRUGS (1)
  1. PROPAFENONE [Suspect]
     Active Substance: PROPAFENONE
     Indication: Ventricular extrasystoles
     Route: 065

REACTIONS (1)
  - Brugada syndrome [Recovered/Resolved]
